FAERS Safety Report 20378061 (Version 1)
Quarter: 2022Q1

REPORT INFORMATION
  Report Type: Spontaneous
  Country: US (occurrence: US)
  Receive Date: 20220126
  Receipt Date: 20220126
  Transmission Date: 20220423
  Serious: No
  Sender: FDA-Public Use
  Company Number: US-JNJFOC-20220133625

PATIENT

DRUGS (6)
  1. SYMTUZA [Interacting]
     Active Substance: COBICISTAT\DARUNAVIR\EMTRICITABINE\TENOFOVIR ALAFENAMIDE
     Indication: Product used for unknown indication
     Route: 048
  2. APIXABAN [Interacting]
     Active Substance: APIXABAN
     Indication: Product used for unknown indication
     Route: 065
  3. IRINOTECAN [Interacting]
     Active Substance: IRINOTECAN
     Indication: Product used for unknown indication
     Route: 065
  4. LEUCOVORIN [Interacting]
     Active Substance: LEUCOVORIN
     Indication: Product used for unknown indication
     Route: 065
  5. VECTIBIX [Interacting]
     Active Substance: PANITUMUMAB
     Indication: Product used for unknown indication
     Route: 065
  6. FLUOROURACIL [Interacting]
     Active Substance: FLUOROURACIL
     Indication: Product used for unknown indication
     Route: 065

REACTIONS (2)
  - Adverse event [Unknown]
  - Drug interaction [Unknown]
